FAERS Safety Report 4950157-9 (Version None)
Quarter: 2006Q1

REPORT INFORMATION
  Report Type: 
  Country: None (occurrence: None)
  Receive Date: 20060316
  Receipt Date: 20060302
  Transmission Date: 20060701
  Serious: Yes (Death)
  Sender: FDA-Public Use
  Company Number: 222790

PATIENT
  Age: 67 Year
  Sex: Male
  Weight: 66 kg

DRUGS (7)
  1. BEVACIZUMAB OR PLACEBO (BEVACIZUMAB ) PWDR + SOLVENT, INFUSION SOLN, 1 [Suspect]
     Indication: NON-SMALL CELL LUNG CANCER
     Dosage: 15 MG/KG Q3W INTRAVENOUS
     Route: 042
     Dates: start: 20051124, end: 20060216
  2. CISPLATIN [Suspect]
     Indication: NON-SMALL CELL LUNG CANCER
     Dosage: 80 MG/M2, Q3W, INTRAVENOUS
     Route: 042
     Dates: start: 20051124, end: 20060216
  3. GEMCITABINE [Suspect]
     Indication: NON-SMALL CELL LUNG CANCER
     Dosage: 1250 MG/M2 INTRAVENOUS
     Route: 042
     Dates: start: 20051124, end: 20060216
  4. CLONIDINE [Concomitant]
  5. ONDANSETRON [Concomitant]
  6. DEXAMETHASONE TAB [Concomitant]
  7. APREPITANT [Concomitant]

REACTIONS (3)
  - COLD SWEAT [None]
  - DYSPNOEA [None]
  - SUDDEN DEATH [None]
